FAERS Safety Report 25800719 (Version 1)
Quarter: 2025Q3

REPORT INFORMATION
  Report Type: Spontaneous
  Country: US (occurrence: US)
  Receive Date: 20250915
  Receipt Date: 20250915
  Transmission Date: 20251021
  Serious: No
  Sender: ALVOGEN
  Company Number: None

PATIENT

DRUGS (1)
  1. LISDEXAMFETAMINE [Suspect]
     Active Substance: LISDEXAMFETAMINE
     Indication: Product used for unknown indication

REACTIONS (5)
  - Somnolence [Unknown]
  - Decreased appetite [Unknown]
  - Irritability [Unknown]
  - Insomnia [Unknown]
  - Drug ineffective [Unknown]
